FAERS Safety Report 21514837 (Version 1)
Quarter: 2022Q4

REPORT INFORMATION
  Report Type: Spontaneous
  Country: US (occurrence: None)
  Receive Date: 20221027
  Receipt Date: 20221027
  Transmission Date: 20230113
  Serious: Yes (Hospitalization)
  Sender: FDA-Public Use
  Company Number: None

PATIENT
  Age: 83 Year
  Sex: Male
  Weight: 73.03 kg

DRUGS (11)
  1. IMATINIB [Suspect]
     Active Substance: IMATINIB
  2. ALBUTEROL [Concomitant]
     Active Substance: ALBUTEROL
  3. CHOLRTHALIDONE [Concomitant]
  4. COMBIVENT [Concomitant]
     Active Substance: ALBUTEROL SULFATE\IPRATROPIUM BROMIDE
  5. HUMULIN [Concomitant]
  6. LANTUS [Concomitant]
     Active Substance: INSULIN GLARGINE
  7. METFORMIN [Concomitant]
     Active Substance: METFORMIN HYDROCHLORIDE
  8. NORVASC [Concomitant]
     Active Substance: AMLODIPINE BESYLATE
  9. PROSCAR [Concomitant]
     Active Substance: FINASTERIDE
  10. SIMVASTATIN [Concomitant]
     Active Substance: SIMVASTATIN
  11. SYMBICORT [Concomitant]
     Active Substance: BUDESONIDE\FORMOTEROL FUMARATE DIHYDRATE

REACTIONS (1)
  - Obstruction gastric [None]
